FAERS Safety Report 6105787-8 (Version None)
Quarter: 2009Q1

REPORT INFORMATION
  Report Type: 
  Country: None (occurrence: None)
  Receive Date: 20090306
  Receipt Date: 20090224
  Transmission Date: 20090719
  Serious: Yes (Other)
  Sender: FDA-Public Use
  Company Number: US-SANOFI-SYNTHELABO-A03200900836

PATIENT
  Sex: Female
  Weight: 61.3 kg

DRUGS (8)
  1. OMEPRAZOLE [Concomitant]
     Indication: DRUG USE FOR UNKNOWN INDICATION
     Dosage: 20 MG 1 IN 1 DAY
     Route: 048
     Dates: start: 20061101
  2. METHYLPREDNISOLONE 4MG TAB [Suspect]
     Indication: DRUG USE FOR UNKNOWN INDICATION
     Dosage: UNK
     Route: 065
     Dates: start: 20080304, end: 20080310
  3. SULFASALAZINE [Suspect]
     Indication: DRUG USE FOR UNKNOWN INDICATION
     Dosage: 2 G, 1 IN 1 DAY
     Route: 048
     Dates: start: 20080304, end: 20080606
  4. PREDNISONE [Suspect]
     Indication: DRUG USE FOR UNKNOWN INDICATION
     Dosage: 1 IN 1 DAY
     Route: 065
     Dates: start: 20061101
  5. LEFLUNOMIDE [Suspect]
     Indication: DRUG USE FOR UNKNOWN INDICATION
     Dosage: 10 MG 1 IN 2 DAYS
     Route: 048
     Dates: start: 20040119, end: 20050325
  6. ENBREL [Suspect]
     Indication: RHEUMATOID ARTHRITIS
     Dosage: 25 MG 1 IN 1 WEEK
     Route: 058
     Dates: start: 19940119, end: 20080128
  7. HYDROXYCHLOROQUINE SULFATE [Suspect]
     Indication: DRUG USE FOR UNKNOWN INDICATION
     Dosage: 200 MG 1 IN 2 DAYS
     Route: 048
     Dates: start: 20060920, end: 20070318
  8. HYDROXYCHLOROQUINE SULFATE [Suspect]
     Dosage: 200 MG 1 IN 1 DAYS
     Route: 048
     Dates: start: 20070319, end: 20070913

REACTIONS (3)
  - LUNG NEOPLASM [None]
  - LYMPHADENOPATHY [None]
  - PNEUMONIA [None]
